FAERS Safety Report 5403846-6 (Version None)
Quarter: 2007Q3

REPORT INFORMATION
  Report Type: 
  Country: None (occurrence: None)
  Receive Date: 20070802
  Receipt Date: 20070724
  Transmission Date: 20080115
  Serious: Yes (Disabling, Other)
  Sender: FDA-Public Use
  Company Number: HQWYE038513OCT06

PATIENT
  Sex: Male

DRUGS (17)
  1. EFFEXOR [Suspect]
     Indication: ANXIETY
     Dates: start: 19981009
  2. EFFEXOR [Suspect]
     Indication: PANIC REACTION
     Dosage: 150 MG (FREQUENCY UNSPECIFIED)
  3. EFFEXOR [Suspect]
     Dates: start: 20060701, end: 20060101
  4. EFFEXOR [Suspect]
     Dates: start: 20060101, end: 20060101
  5. EFFEXOR [Suspect]
     Dates: start: 20060101, end: 20060101
  6. EFFEXOR [Suspect]
     Dates: start: 20060101, end: 20061001
  7. EFFEXOR [Suspect]
     Dates: start: 20061001, end: 20060101
  8. EFFEXOR [Suspect]
     Dates: start: 20060101, end: 20060101
  9. FLUANXOL ^LUNDBECK^ [Concomitant]
     Indication: ANXIETY
     Dates: start: 19980301, end: 19980930
  10. FLUANXOL ^LUNDBECK^ [Concomitant]
     Dates: start: 19981001
  11. LITAREX [Concomitant]
     Indication: ANXIETY
     Dosage: 0.30 2 TABLETS DAILY
     Dates: start: 19980601, end: 19981207
  12. LITAREX [Concomitant]
     Dates: start: 19981208, end: 19990301
  13. BROMAN [Concomitant]
     Indication: ANXIETY
     Dates: start: 19980409, end: 19980608
  14. BROMAN [Concomitant]
     Dates: start: 19980609, end: 19980801
  15. BROMAN [Concomitant]
     Dates: start: 19980801, end: 19980930
  16. BROMAN [Concomitant]
     Dates: start: 19981001, end: 19981008
  17. BROMAN [Concomitant]
     Dates: start: 19981009, end: 19990301

REACTIONS (13)
  - ANGER [None]
  - ANXIETY [None]
  - CONDITION AGGRAVATED [None]
  - DRUG WITHDRAWAL SYNDROME [None]
  - FLAT AFFECT [None]
  - HALLUCINATION, AUDITORY [None]
  - MARITAL PROBLEM [None]
  - MOOD ALTERED [None]
  - MUSCLE TWITCHING [None]
  - NONSPECIFIC REACTION [None]
  - PARAESTHESIA [None]
  - SUICIDAL IDEATION [None]
  - WEIGHT INCREASED [None]
